FAERS Safety Report 4342117-6 (Version None)
Quarter: 2004Q1

REPORT INFORMATION
  Report Type: 
  Country: None (occurrence: None)
  Receive Date: 20040329
  Receipt Date: 20040119
  Transmission Date: 20041129
  Serious: No
  Sender: FDA-Public Use
  Company Number: 04P-163-0247506-00

PATIENT
  Age: 67 Year
  Sex: Female
  Weight: 78.9259 kg

DRUGS (15)
  1. HUMIRA [Suspect]
     Indication: RHEUMATOID ARTHRITIS
     Dosage: 40 MG, 1 IN 2 WK, SUBCUTANEOUS
     Route: 058
     Dates: start: 20040114
  2. ALENDRONATE SODIUM [Concomitant]
  3. METHOTREXATE [Concomitant]
  4. PREDNISONE [Concomitant]
  5. ARTHROTEC [Concomitant]
  6. FLUOXETINE HCL [Concomitant]
  7. ATORVASTATIN [Concomitant]
  8. AMLODIPINE BESYLATE [Concomitant]
  9. VALSARTAN [Concomitant]
  10. GABAPENTIN [Concomitant]
  11. RANITIDINE HYDROCHLORIDE [Concomitant]
  12. ACETAMINOPHEN [Concomitant]
  13. CALCIUM WITH VITAMIN D [Concomitant]
  14. MULTIVITAMIN [Concomitant]
  15. BI-KOMPLEX ^LEVICA^ [Concomitant]

REACTIONS (3)
  - HEADACHE [None]
  - LOOSE STOOLS [None]
  - PAIN [None]
